FAERS Safety Report 6536421-0 (Version None)
Quarter: 2009Q4

REPORT INFORMATION
  Report Type: 
  Country: None (occurrence: None)
  Receive Date: 20091229
  Receipt Date: 20081105
  Transmission Date: 20100525
  Serious: Yes (Other)
  Sender: FDA-Public Use
  Company Number: WAES 0811USA00820

PATIENT
  Age: 65 Year
  Sex: Female

DRUGS (1)
  1. ZETIA [Suspect]
     Dosage: PO
     Route: 048

REACTIONS (1)
  - RHABDOMYOLYSIS [None]
